FAERS Safety Report 21361165 (Version 1)
Quarter: 2022Q3

REPORT INFORMATION
  Report Type: Spontaneous
  Country: DE (occurrence: DE)
  Receive Date: 20220921
  Receipt Date: 20220921
  Transmission Date: 20221027
  Serious: Yes (Death, Hospitalization, Other)
  Sender: FDA-Public Use
  Company Number: DE-ADRED-07709-01

PATIENT
  Age: 77 Year
  Sex: Male
  Weight: 70 kg

DRUGS (8)
  1. CANDESARTAN [Suspect]
     Active Substance: CANDESARTAN
  2. CLOPIDOGREL BISULFATE [Suspect]
     Active Substance: CLOPIDOGREL BISULFATE
  3. ASPIRIN [Suspect]
     Active Substance: ASPIRIN
     Dosage: 100 MG
  4. IBUPROFEN [Suspect]
     Active Substance: IBUPROFEN
     Dosage: 600 MG
  5. MELATONIN [Concomitant]
     Active Substance: MELATONIN
  6. PANTOPRAZOLE [Concomitant]
     Active Substance: PANTOPRAZOLE
  7. DONEPEZIL [Concomitant]
     Active Substance: DONEPEZIL
  8. LERCANIDIPINE HYDROCHLORIDE [Concomitant]
     Active Substance: LERCANIDIPINE HYDROCHLORIDE

REACTIONS (2)
  - Loss of consciousness [Fatal]
  - Cardiac arrest [Fatal]
